FAERS Safety Report 18233260 (Version 1)
Quarter: 2020Q3

REPORT INFORMATION
  Report Type: Spontaneous
  Country: US (occurrence: US)
  Receive Date: 20200904
  Receipt Date: 20200904
  Transmission Date: 20201103
  Serious: Yes (Other)
  Sender: FDA-Public Use
  Company Number: US-OSMOTICA_PHARMACEUTICAL_US_LLC-POI0573202000406

PATIENT
  Age: 71 Year
  Sex: Male

DRUGS (9)
  1. OSMOLEX ER [Suspect]
     Active Substance: AMANTADINE
     Dates: start: 202003, end: 20200705
  2. BABY ASPIRIN [Concomitant]
     Active Substance: ASPIRIN
     Indication: CORONARY ARTERY DISEASE
  3. OSMOLEX ER [Suspect]
     Active Substance: AMANTADINE
     Dates: start: 202003, end: 202003
  4. FLOMAX [Concomitant]
     Active Substance: TAMSULOSIN HYDROCHLORIDE
     Indication: URINARY RETENTION
  5. PLAVIX [Concomitant]
     Active Substance: CLOPIDOGREL BISULFATE
     Indication: CORONARY ARTERY DISEASE
  6. OSMOLEX ER [Suspect]
     Active Substance: AMANTADINE
     Indication: PARKINSON^S DISEASE
     Dates: start: 2019, end: 202003
  7. ISOSORBIDE MONONITE [Concomitant]
     Indication: CORONARY ARTERY DISEASE
  8. OSMOLEX ER [Suspect]
     Active Substance: AMANTADINE
     Dates: start: 20200706
  9. ATORVASTATIN [Concomitant]
     Active Substance: ATORVASTATIN
     Indication: CORONARY ARTERY DISEASE

REACTIONS (2)
  - Hallucination [Unknown]
  - Mental impairment [Unknown]

NARRATIVE: CASE EVENT DATE: 202003
